FAERS Safety Report 17594462 (Version 1)
Quarter: 2020Q1

REPORT INFORMATION
  Report Type: Spontaneous
  Country: CH (occurrence: CH)
  Receive Date: 20200327
  Receipt Date: 20200327
  Transmission Date: 20200409
  Serious: Yes (Other)
  Sender: FDA-Public Use
  Company Number: CH-009507513-2004-113007-NL

PATIENT
  Age: 0 Day
  Sex: Female

DRUGS (4)
  1. TRANXILIUM [Suspect]
     Active Substance: CLORAZEPATE DIPOTASSIUM
     Dosage: 10 MILLIGRAM, QD
     Route: 048
     Dates: start: 20030901, end: 20030916
  2. REMERON [Suspect]
     Active Substance: MIRTAZAPINE
     Dosage: UNK
     Route: 048
     Dates: start: 20030810, end: 20031010
  3. ANAFRANIL [Suspect]
     Active Substance: CLOMIPRAMINE HYDROCHLORIDE
     Dosage: 25 MILLIGRAM, QD
     Route: 048
     Dates: start: 20030810
  4. TEMESTA (LORAZEPAM) [Suspect]
     Active Substance: LORAZEPAM
     Dosage: UNK
     Route: 048
     Dates: start: 20030810, end: 20030930

REACTIONS (2)
  - Exposure during pregnancy [Recovered/Resolved]
  - Fallot^s tetralogy [Not Recovered/Not Resolved]

NARRATIVE: CASE EVENT DATE: 20040313
